FAERS Safety Report 6597004-X (Version None)
Quarter: 2010Q1

REPORT INFORMATION
  Report Type: 
  Country: None (occurrence: None)
  Receive Date: 20100223
  Receipt Date: 20100222
  Transmission Date: 20100710
  Serious: Yes (Other)
  Sender: FDA-Public Use
  Company Number: A0836985A

PATIENT
  Age: 85 Year
  Sex: Female

DRUGS (8)
  1. ADVAIR DISKUS 100/50 [Suspect]
     Indication: CHRONIC OBSTRUCTIVE PULMONARY DISEASE
     Route: 055
     Dates: start: 20020101
  2. TOPROL-XL [Concomitant]
  3. MAXZIDE [Concomitant]
  4. SPIRIVA [Concomitant]
  5. PREVACID [Concomitant]
  6. CELEBREX [Concomitant]
  7. IBUPROFEN [Concomitant]
  8. VICODIN [Concomitant]

REACTIONS (4)
  - DYSPNOEA [None]
  - FALL [None]
  - PELVIC FRACTURE [None]
  - PRODUCT QUALITY ISSUE [None]
